FAERS Safety Report 14536473 (Version 1)
Quarter: 2018Q1

REPORT INFORMATION
  Report Type: Spontaneous
  Country: US (occurrence: US)
  Receive Date: 20180215
  Receipt Date: 20180215
  Transmission Date: 20180509
  Serious: No
  Sender: FDA-Public Use
  Company Number: US-BAYER-2018-024219

PATIENT
  Sex: Female
  Weight: 57 kg

DRUGS (2)
  1. CLARITIN [Suspect]
     Active Substance: LORATADINE
     Indication: PERFUME SENSITIVITY
     Dosage: 1 DF, QD
     Route: 048
  2. VITAMINS NOS [Concomitant]
     Active Substance: VITAMINS
     Dosage: UNK

REACTIONS (8)
  - Product packaging quantity issue [None]
  - Circumstance or information capable of leading to medication error [Unknown]
  - Off label use [None]
  - Incorrect drug administration duration [None]
  - Product use in unapproved indication [Unknown]
  - Product use complaint [Unknown]
  - Therapeutic response unexpected [Unknown]
  - Drug administration error [None]

NARRATIVE: CASE EVENT DATE: 2014
